FAERS Safety Report 13597606 (Version 1)
Quarter: 2017Q2

REPORT INFORMATION
  Report Type: Spontaneous
  Country: US (occurrence: US)
  Receive Date: 20170531
  Receipt Date: 20170531
  Transmission Date: 20170830
  Serious: No
  Sender: FDA-Public Use
  Company Number: US-APOTEX-2017AP012000

PATIENT
  Sex: Female

DRUGS (2)
  1. CLARISPRAY NASAL ALLERGY [Suspect]
     Active Substance: FLUTICASONE PROPIONATE
     Indication: VIRAL UPPER RESPIRATORY TRACT INFECTION
  2. CLARISPRAY NASAL ALLERGY [Suspect]
     Active Substance: FLUTICASONE PROPIONATE
     Indication: HYPERSENSITIVITY
     Dosage: 1DOSE SPRAY PER NOSTRIL DAILY, INHALED
     Route: 050
     Dates: start: 20170429, end: 20170503

REACTIONS (4)
  - Epistaxis [Recovering/Resolving]
  - Underdose [Unknown]
  - Throat irritation [Unknown]
  - Nausea [Recovering/Resolving]
